FAERS Safety Report 5735955-6 (Version None)
Quarter: 2008Q2

REPORT INFORMATION
  Report Type: 
  Country: None (occurrence: None)
  Receive Date: 20080509
  Receipt Date: 20080502
  Transmission Date: 20081010
  Serious: Yes (Other)
  Sender: FDA-Public Use
  Company Number: 2008011568

PATIENT
  Age: 2 Year
  Sex: Female

DRUGS (1)
  1. ROLAIDS MULTI-SYMPTOM (MAGNESIUM HYDROXIDE, CALCIUM CARBONATE, SIMETIC [Suspect]
     Dosage: ABOUT 20 TABLETS, ORAL
     Route: 048

REACTIONS (2)
  - ACCIDENTAL EXPOSURE [None]
  - INCORRECT DOSE ADMINISTERED [None]
